FAERS Safety Report 8942316 (Version 2)
Quarter: 2014Q2

REPORT INFORMATION
  Report Type: Spontaneous
  Country: US (occurrence: None)
  Receive Date: 20121123
  Receipt Date: 20140523
  Transmission Date: 20141212
  Serious: Yes (Hospitalization, Other)
  Sender: FDA-Public Use
  Company Number: 2012-001791

PATIENT
  Age: 54 Year
  Sex: Female

DRUGS (15)
  1. ACTONEL (RISEDRONATE SODIUM) TABLET, 35MG [Suspect]
     Indication: OSTEOPOROSIS
     Route: 048
     Dates: start: 200805, end: 20100324
  2. ALENDRONATE SODIUM [Suspect]
     Indication: OSTEOPOROSIS
     Route: 048
  3. FOSAMAX (ALENDRONATE SODIUM) [Suspect]
     Indication: OSTEOPOROSIS
     Route: 048
  4. FOSAMAX D [Suspect]
     Indication: OSTEOPOROSIS
     Route: 048
  5. WELLBUTRIN (BUPROPION HYDROCHLORIDE) [Concomitant]
  6. LYRICA (PREGABALIN) [Concomitant]
  7. FENTANYL (FENTANYL) [Concomitant]
  8. CALCIUM PLUS VITAMIN D (CALCIUM, COLECALCIFEROL) [Concomitant]
  9. MULTIVITAMIN (ASCORBIC ACID, CALCIUM PANTOTHENATE, ERGOCALCIFEROL, NICOTINAMIDE, PYRIDOXINE HYDROCHLORIDE, RETINOL, RIBOFLAVIN, THIAMINE HYDROCHLORIDE) [Concomitant]
  10. ADVIL (IBUPROFEN) [Concomitant]
  11. TYLENOL (PARACETAMOL) [Concomitant]
  12. TIZANIDINE HYDROCHLORIDE (TIZANIDINE HYDROCHLORIDE) [Concomitant]
  13. TOPROL (METOPROLOL SUCCINATE) [Concomitant]
  14. LORAZEPAM (LORAZEPAM) [Concomitant]
  15. FISH OIL (FISH OIL) [Concomitant]

REACTIONS (24)
  - Femur fracture [None]
  - Fracture displacement [None]
  - Comminuted fracture [None]
  - Pain in extremity [None]
  - Fall [None]
  - Pathological fracture [None]
  - Low turnover osteopathy [None]
  - Skeletal injury [None]
  - Toxicity to various agents [None]
  - Pain [None]
  - Nerve compression [None]
  - Back pain [None]
  - Hypoaesthesia [None]
  - Abasia [None]
  - Musculoskeletal pain [None]
  - Weight bearing difficulty [None]
  - Bursitis [None]
  - Meniscus injury [None]
  - Chondromalacia [None]
  - Impaired healing [None]
  - Device dislocation [None]
  - Radiculitis [None]
  - Sciatica [None]
  - Intervertebral disc protrusion [None]
